FAERS Safety Report 23736647 (Version 1)
Quarter: 2024Q2

REPORT INFORMATION
  Report Type: Spontaneous
  Country: HR (occurrence: HR)
  Receive Date: 20240412
  Receipt Date: 20240412
  Transmission Date: 20240716
  Serious: Yes (Other)
  Sender: FDA-Public Use
  Company Number: None

PATIENT
  Age: 15 Year
  Sex: Female
  Weight: 56 kg

DRUGS (3)
  1. ESCITALOPRAM [Suspect]
     Active Substance: ESCITALOPRAM OXALATE
     Indication: Product used for unknown indication
     Dosage: INTENTIONAL OVERDOSE: 160 MILIGRAM/DAY
     Route: 048
     Dates: start: 20240205, end: 20240205
  2. ALPRAZOLAM [Suspect]
     Active Substance: ALPRAZOLAM
     Indication: Product used for unknown indication
     Dosage: UNIT DOSE 3 MILLIGRAM
     Route: 048
     Dates: start: 20240205, end: 20240205
  3. QUETIAPINE [Suspect]
     Active Substance: QUETIAPINE
     Indication: Product used for unknown indication
     Dosage: UNIT DOSE 250 MILLIGRAM
     Route: 048
     Dates: start: 20240205, end: 20240205

REACTIONS (4)
  - Vomiting [Unknown]
  - Suicide attempt [Unknown]
  - Product administered to patient of inappropriate age [Unknown]
  - Intentional overdose [Unknown]

NARRATIVE: CASE EVENT DATE: 20240205
